FAERS Safety Report 20045042 (Version 1)
Quarter: 2021Q4

REPORT INFORMATION
  Report Type: Spontaneous
  Country: CH (occurrence: CH)
  Receive Date: 20211108
  Receipt Date: 20211108
  Transmission Date: 20220304
  Serious: Yes (Other)
  Sender: FDA-Public Use
  Company Number: CH-BAYER-2021A232008

PATIENT
  Age: 43 Year

DRUGS (1)
  1. STIVARGA [Suspect]
     Active Substance: REGORAFENIB
     Indication: Gastrointestinal stromal tumour
     Dosage: 160MG/D
     Dates: start: 20210527

REACTIONS (3)
  - Thrombocytosis [None]
  - Systemic inflammatory response syndrome [None]
  - Mucosal disorder [Recovering/Resolving]
